FAERS Safety Report 10574661 (Version 2)
Quarter: 2014Q4

REPORT INFORMATION
  Report Type: Spontaneous
  Country: CO (occurrence: CO)
  Receive Date: 20141110
  Receipt Date: 20141121
  Transmission Date: 20150529
  Serious: Yes (Other)
  Sender: FDA-Public Use
  Company Number: CO-PFIZER INC-2014306680

PATIENT
  Age: 83 Year
  Sex: Female

DRUGS (9)
  1. LYRICA [Suspect]
     Active Substance: PREGABALIN
     Indication: CHEST PAIN
     Dosage: 75 MG, 2X/DAY (EACH 12 HOURS)
     Route: 048
  2. PAXAN [Concomitant]
  3. BISOPROLOL [Concomitant]
     Active Substance: BISOPROLOL
  4. ATORVASTATIN [Concomitant]
     Active Substance: ATORVASTATIN
  5. LANITOP [Concomitant]
     Active Substance: METILDIGOXIN
  6. FUROSEMIDE. [Concomitant]
     Active Substance: FUROSEMIDE
  7. TRAMADOL [Concomitant]
     Active Substance: TRAMADOL
  8. RIVOTRIL [Concomitant]
     Active Substance: CLONAZEPAM
  9. LYRICA [Suspect]
     Active Substance: PREGABALIN
     Indication: PAIN

REACTIONS (6)
  - Speech disorder [Recovered/Resolved]
  - Angina unstable [Recovered/Resolved]
  - Amnesia [Recovered/Resolved]
  - Hallucination, visual [Recovered/Resolved]
  - Insomnia [Recovered/Resolved]
  - Asthenia [Recovered/Resolved]
